FAERS Safety Report 23776512 (Version 1)
Quarter: 2024Q2

REPORT INFORMATION
  Report Type: Spontaneous
  Country: US (occurrence: None)
  Receive Date: 20240424
  Receipt Date: 20240424
  Transmission Date: 20240716
  Serious: Yes (Hospitalization)
  Sender: FDA-Public Use
  Company Number: US-ROCHE-3546639

PATIENT
  Age: 37 Year
  Sex: Female

DRUGS (1)
  1. OCREVUS [Suspect]
     Active Substance: OCRELIZUMAB
     Indication: Primary progressive multiple sclerosis
     Route: 065

REACTIONS (6)
  - COVID-19 [Unknown]
  - Seizure [Unknown]
  - Sarcoidosis [Unknown]
  - Tuberculosis [Unknown]
  - Meningitis [Unknown]
  - Neoplasm [Unknown]
